FAERS Safety Report 7971430-6 (Version None)
Quarter: 2011Q4

REPORT INFORMATION
  Report Type: 
  Country: None (occurrence: None)
  Receive Date: 20111212
  Receipt Date: 20111205
  Transmission Date: 20120403
  Serious: Yes (Other)
  Sender: FDA-Public Use
  Company Number: US-TEVA-312214USA

PATIENT
  Age: 39 Year
  Sex: Female

DRUGS (2)
  1. COPAXONE [Suspect]
     Indication: MULTIPLE SCLEROSIS
     Route: 058
  2. NATALIZUMAB [Suspect]
     Indication: MULTIPLE SCLEROSIS

REACTIONS (2)
  - BLINDNESS UNILATERAL [None]
  - DRUG INEFFECTIVE [None]
